FAERS Safety Report 22355781 (Version 1)
Quarter: 2023Q2

REPORT INFORMATION
  Report Type: Spontaneous
  Country: ES (occurrence: ES)
  Receive Date: 20230523
  Receipt Date: 20230523
  Transmission Date: 20230721
  Serious: Yes (Other)
  Sender: FDA-Public Use
  Company Number: ES-SUN PHARMACEUTICAL INDUSTRIES LTD-2023RR-389615

PATIENT
  Age: 62 Year
  Sex: Female

DRUGS (5)
  1. TRABECTEDIN [Suspect]
     Active Substance: TRABECTEDIN
     Indication: Leiomyosarcoma
     Dosage: 1.5 MILLIGRAM PER CUBIC METRE, IN A 24-H CONTINUOUS INFUSION EVERY 21 DAYS
     Route: 065
  2. DOXORUBICIN [Interacting]
     Active Substance: DOXORUBICIN
     Indication: Leiomyosarcoma
     Dosage: SIX CYCLES
     Route: 065
  3. GEMCITABINE [Interacting]
     Active Substance: GEMCITABINE
     Indication: Disease progression
     Dosage: 1800 MILLIGRAM PER CUBIC METRE
     Route: 065
  4. OLARATUMAB [Concomitant]
     Active Substance: OLARATUMAB
     Indication: Leiomyosarcoma
     Dosage: SIX CYCLES
     Route: 065
  5. DACARBAZINE [Concomitant]
     Active Substance: DACARBAZINE
     Indication: Leiomyosarcoma
     Dosage: 500 MILLIGRAM PER CUBIC METRE, EVERY 2 WEEKS
     Route: 065

REACTIONS (3)
  - Disease progression [Unknown]
  - Therapeutic product effect incomplete [Unknown]
  - Treatment failure [Unknown]

NARRATIVE: CASE EVENT DATE: 20170601
